FAERS Safety Report 6031015-8 (Version None)
Quarter: 2009Q1

REPORT INFORMATION
  Report Type: 
  Country: None (occurrence: None)
  Receive Date: 20090108
  Receipt Date: 20081229
  Transmission Date: 20090719
  Serious: Yes (Other)
  Sender: FDA-Public Use
  Company Number: FR-WYE-H07433108

PATIENT

DRUGS (1)
  1. INIPOMP [Suspect]
     Dosage: UNKNOWN

REACTIONS (1)
  - SUICIDAL IDEATION [None]
